FAERS Safety Report 23303891 (Version 1)
Quarter: 2023Q4

REPORT INFORMATION
  Report Type: Spontaneous
  Country: US (occurrence: US)
  Receive Date: 20231215
  Receipt Date: 20231215
  Transmission Date: 20240109
  Serious: Yes (Death)
  Sender: FDA-Public Use
  Company Number: US-PERRIGO-23US014445

PATIENT
  Age: 52 Year
  Sex: Female

DRUGS (13)
  1. CETIRIZINE HYDROCHLORIDE [Suspect]
     Active Substance: CETIRIZINE HYDROCHLORIDE
     Indication: Suspected suicide
     Dosage: UNK, UNK
     Route: 048
  2. OMEPRAZOLE MAGNESIUM [Suspect]
     Active Substance: OMEPRAZOLE MAGNESIUM
     Indication: Suspected suicide
     Dosage: UNK, UNK
     Route: 061
  3. VERAPAMIL [Suspect]
     Active Substance: VERAPAMIL HYDROCHLORIDE
     Indication: Suspected suicide
     Dosage: UNK, UNK
     Route: 048
  4. GABAPENTIN [Suspect]
     Active Substance: GABAPENTIN
     Indication: Suspected suicide
     Dosage: UNK, UNK
     Route: 048
  5. TAMSULOSIN [Suspect]
     Active Substance: TAMSULOSIN
     Indication: Suspected suicide
     Dosage: UNK, UNK
     Route: 048
  6. METOPROLOL [Suspect]
     Active Substance: METOPROLOL
     Indication: Suspected suicide
     Dosage: UNK, UNK
     Route: 048
  7. DULOXETINE [Suspect]
     Active Substance: DULOXETINE
     Indication: Suspected suicide
     Dosage: UNK, UNK
     Route: 048
  8. TRAMADOL [Suspect]
     Active Substance: TRAMADOL\TRAMADOL HYDROCHLORIDE
     Indication: Suspected suicide
     Dosage: UNK, UNK
     Route: 048
  9. OXYBUTYNIN [Suspect]
     Active Substance: OXYBUTYNIN
     Indication: Suspected suicide
     Dosage: UNK, UNK
     Route: 048
  10. RIZATRIPTAN [Suspect]
     Active Substance: RIZATRIPTAN
     Indication: Suspected suicide
     Dosage: UNK, UNK
     Route: 048
  11. ACYCLOVIR [Suspect]
     Active Substance: ACYCLOVIR
     Indication: Suspected suicide
     Dosage: UNK, UNK
     Route: 048
  12. METHENAMINE\SODIUM SALICYLATE [Suspect]
     Active Substance: METHENAMINE\SODIUM SALICYLATE
     Indication: Suspected suicide
     Dosage: UNK, UNK
     Route: 048
  13. BUSPIRONE [Suspect]
     Active Substance: BUSPIRONE HYDROCHLORIDE
     Indication: Suspected suicide
     Dosage: UNK, UNK
     Route: 048

REACTIONS (2)
  - Exposure to toxic agent [Fatal]
  - Completed suicide [Fatal]

NARRATIVE: CASE EVENT DATE: 20220101
